FAERS Safety Report 5839786-8 (Version None)
Quarter: 2008Q3

REPORT INFORMATION
  Report Type: 
  Country: None (occurrence: None)
  Receive Date: 20080807
  Receipt Date: 20080807
  Transmission Date: 20090109
  Serious: Yes (Other)
  Sender: FDA-Public Use
  Company Number: None

PATIENT
  Sex: Female
  Weight: 69.4003 kg

DRUGS (2)
  1. PREMARIN [Suspect]
     Indication: HORMONE REPLACEMENT THERAPY
     Dosage: 0.625MG DAILY ORAL
     Route: 048
     Dates: start: 20020101
  2. ESTRATEST [Suspect]
     Indication: HORMONE REPLACEMENT THERAPY
     Dosage: 0.625MG DAILY ORAL
     Route: 048
     Dates: start: 20030101

REACTIONS (4)
  - BLOOD OESTROGEN DECREASED [None]
  - DEPRESSION [None]
  - LIBIDO DECREASED [None]
  - WEIGHT INCREASED [None]
